FAERS Safety Report 12801356 (Version 2)
Quarter: 2018Q1

REPORT INFORMATION
  Report Type: Spontaneous
  Country: US (occurrence: US)
  Receive Date: 20161003
  Receipt Date: 20180313
  Transmission Date: 20180508
  Serious: No
  Sender: FDA-Public Use
  Company Number: US-BIOGEN-2016BI00295692

PATIENT
  Sex: Female

DRUGS (1)
  1. TYSABRI [Suspect]
     Active Substance: NATALIZUMAB
     Indication: MULTIPLE SCLEROSIS
     Dosage: INFUSED OVER 1 HOUR
     Route: 042
     Dates: start: 20071114

REACTIONS (6)
  - Cognitive disorder [Unknown]
  - Peripheral swelling [Unknown]
  - Arthritis [Unknown]
  - Fatigue [Unknown]
  - Multiple sclerosis [Unknown]
  - Malaise [Unknown]

NARRATIVE: CASE EVENT DATE: 2007
